FAERS Safety Report 4608783-2 (Version None)
Quarter: 2005Q1

REPORT INFORMATION
  Report Type: 
  Country: None (occurrence: None)
  Receive Date: 20050309
  Receipt Date: 20050221
  Transmission Date: 20050727
  Serious: Yes (Hospitalization)
  Sender: FDA-Public Use
  Company Number: WAES 0410GBR00020

PATIENT
  Age: 74 Year
  Sex: Female

DRUGS (6)
  1. VIOXX [Suspect]
     Indication: NEOPLASM PROPHYLAXIS
     Dosage: 25 MG/DAILY
     Route: 048
     Dates: start: 20031128, end: 20041001
  2. ASPIRIN [Suspect]
     Dosage: 75 MG
     Route: 048
  3. LANSOPRAZOLE [Concomitant]
  4. LISINOPRIL [Concomitant]
  5. PRAZOSIN HCL [Concomitant]
  6. SIMVASTATIN [Concomitant]

REACTIONS (4)
  - CIRCULATORY COLLAPSE [None]
  - DIVERTICULUM [None]
  - HAEMOGLOBIN DECREASED [None]
  - RECTAL HAEMORRHAGE [None]
